FAERS Safety Report 6539985-6 (Version None)
Quarter: 2010Q1

REPORT INFORMATION
  Report Type: 
  Country: None (occurrence: None)
  Receive Date: 20100115
  Receipt Date: 20100106
  Transmission Date: 20100710
  Serious: Yes (Other)
  Sender: FDA-Public Use
  Company Number: PHHY2010US00851

PATIENT
  Age: 54 Year
  Sex: Female
  Weight: 193 kg

DRUGS (2)
  1. RECLAST [Suspect]
     Indication: OSTEOPOROSIS POSTMENOPAUSAL
     Dosage: 5 MG/100 ML ONCE YEARLY
     Dates: start: 20091215, end: 20091215
  2. FENOFIBRATE [Concomitant]
     Dosage: UNK

REACTIONS (2)
  - BLOOD CREATININE INCREASED [None]
  - GLOMERULAR FILTRATION RATE DECREASED [None]
